FAERS Safety Report 5708463-6 (Version None)
Quarter: 2008Q2

REPORT INFORMATION
  Report Type: 
  Country: None (occurrence: None)
  Receive Date: 20080417
  Receipt Date: 20080407
  Transmission Date: 20081010
  Serious: Yes (Other)
  Sender: FDA-Public Use
  Company Number: ES-PFIZER INC-2008018245

PATIENT
  Age: 13 Year
  Sex: Male

DRUGS (8)
  1. VFEND [Suspect]
     Indication: ASPERGILLOSIS
  2. ITRACONAZOLE [Suspect]
     Dates: start: 20080101, end: 20080101
  3. ITRACONAZOLE [Suspect]
  4. SEPTRIN [Concomitant]
  5. ENTOCORD [Concomitant]
  6. ALL OTHER THERAPEUTIC PRODUCTS [Concomitant]
     Indication: LEUKAEMIA
  7. ALL OTHER THERAPEUTIC PRODUCTS [Concomitant]
     Route: 047
  8. CORTICOSTEROIDS [Concomitant]
     Route: 061

REACTIONS (4)
  - ABDOMINAL DISTENSION [None]
  - MEDICATION ERROR [None]
  - SKIN SWELLING [None]
  - SWELLING FACE [None]
